FAERS Safety Report 7513366-0 (Version None)
Quarter: 2011Q2

REPORT INFORMATION
  Report Type: 
  Country: None (occurrence: None)
  Receive Date: 20110531
  Receipt Date: 20110526
  Transmission Date: 20111010
  Serious: Yes (Other)
  Sender: FDA-Public Use
  Company Number: AU-SANOFI-AVENTIS-2011SA033028

PATIENT
  Age: 59 Year
  Sex: Female

DRUGS (2)
  1. ARAVA [Suspect]
     Route: 065
     Dates: start: 20060215, end: 20110406
  2. METHOTREXATE [Concomitant]

REACTIONS (1)
  - LYMPHOMA [None]
